FAERS Safety Report 7337957-5 (Version None)
Quarter: 2011Q1

REPORT INFORMATION
  Report Type: 
  Country: None (occurrence: None)
  Receive Date: 20110210
  Receipt Date: 20101130
  Transmission Date: 20110831
  Serious: No
  Sender: FDA-Public Use
  Company Number: 1000017517

PATIENT
  Age: 75 Year
  Sex: Male

DRUGS (2)
  1. VICOPROFEN [Concomitant]
  2. SAVELLA [Suspect]
     Indication: OSTEOARTHRITIS
     Dosage: 12.5 MG (12.5 MG, 1 IN 1 D), ORAL
     Route: 048
     Dates: start: 20101101, end: 20101101

REACTIONS (2)
  - NERVOUSNESS [None]
  - MENTAL IMPAIRMENT [None]
